FAERS Safety Report 20609604 (Version 1)
Quarter: 2022Q1

REPORT INFORMATION
  Report Type: Spontaneous
  Country: FR (occurrence: FR)
  Receive Date: 20220318
  Receipt Date: 20220318
  Transmission Date: 20220424
  Serious: Yes (Hospitalization, Congenital Anomaly, Other)
  Sender: FDA-Public Use
  Company Number: FR-ABBVIE-22K-056-4321546-00

PATIENT

DRUGS (1)
  1. VALPROATE SODIUM [Suspect]
     Active Substance: VALPROATE SODIUM
     Indication: Maternal exposure timing unspecified
     Route: 064

REACTIONS (18)
  - Meningomyelocele [Unknown]
  - Kidney malformation [Unknown]
  - Arnold-Chiari malformation [Unknown]
  - Respiratory distress [Unknown]
  - Hydrocephalus [Unknown]
  - Memory impairment [Unknown]
  - Hypoaesthesia [Unknown]
  - Kyphosis [Unknown]
  - Developmental delay [Unknown]
  - Disturbance in attention [Unknown]
  - Cognitive disorder [Unknown]
  - Language disorder [Unknown]
  - Inguinal hernia [Unknown]
  - Haemangioma of bone [Unknown]
  - Myopia [Unknown]
  - Tympanic membrane disorder [Unknown]
  - Urinary tract disorder [Unknown]
  - Foetal exposure during pregnancy [Unknown]

NARRATIVE: CASE EVENT DATE: 19980313
